FAERS Safety Report 4277498-5 (Version None)
Quarter: 2004Q1

REPORT INFORMATION
  Report Type: 
  Country: None (occurrence: None)
  Receive Date: 20040122
  Receipt Date: 20021223
  Transmission Date: 20041129
  Serious: Yes (Hospitalization)
  Sender: FDA-Public Use
  Company Number: US-BRISTOL-MYERS SQUIBB COMPANY-12143566

PATIENT
  Age: 77 Year
  Sex: Male

DRUGS (9)
  1. PRAVASTATIN SODIUM [Suspect]
     Dosage: MOST RECENT DOSE PRIOR TO EVENT 10-DEC-2002
     Route: 048
     Dates: start: 20010823
  2. PLACEBO [Suspect]
     Dosage: MOST RECENT DOSE PRIOR TO EVENT 10-DEC-2002
     Route: 048
     Dates: start: 20010907
  3. COUMADIN [Suspect]
     Dosage: HELD UNTIL FURTHER FOLLOW UP IS DONE
     Route: 048
     Dates: start: 20010822
  4. ASPIRIN [Suspect]
     Dosage: HELD UNTIL FURTHER FOLLOW UP IS DONE
     Route: 048
     Dates: start: 20010820
  5. VOLTAREN [Suspect]
     Dosage: HELD UNTIL FURTHER FOLLOW UP IS DONE
     Route: 048
     Dates: start: 20010905
  6. ZESTRIL [Concomitant]
     Route: 048
     Dates: start: 20010822
  7. ALLOPURINOL [Concomitant]
     Route: 048
     Dates: start: 20010824
  8. CLARITIN [Concomitant]
     Route: 048
     Dates: start: 20010918
  9. CENTRUM [Concomitant]
     Dosage: 1 DOSAGE FORM = TABLET
     Route: 048
     Dates: start: 20011213

REACTIONS (7)
  - DIARRHOEA [None]
  - GASTRITIS [None]
  - GASTROINTESTINAL HAEMORRHAGE [None]
  - HAEMOGLOBIN DECREASED [None]
  - MALLORY-WEISS SYNDROME [None]
  - SYNCOPE [None]
  - TRANSFUSION REACTION [None]
